FAERS Safety Report 5808817-3 (Version None)
Quarter: 2008Q3

REPORT INFORMATION
  Report Type: 
  Country: None (occurrence: None)
  Receive Date: 20080714
  Receipt Date: 20080709
  Transmission Date: 20090109
  Serious: Yes (Other)
  Sender: FDA-Public Use
  Company Number: B0527037A

PATIENT
  Age: 49 Year
  Sex: Female
  Weight: 57 kg

DRUGS (2)
  1. LAPATINIB [Suspect]
     Dosage: 1250MG PER DAY
     Dates: start: 20080610
  2. CAPECITABINE [Concomitant]
     Dosage: 2000MGM2 PER DAY

REACTIONS (3)
  - ASTHENIA [None]
  - DIPLOPIA [None]
  - PALPITATIONS [None]
